FAERS Safety Report 24705250 (Version 1)
Quarter: 2024Q4

REPORT INFORMATION
  Report Type: Report from Study
  Country: IT (occurrence: IT)
  Receive Date: 20241206
  Receipt Date: 20241206
  Transmission Date: 20250114
  Serious: Yes (Other)
  Sender: ACCORD
  Company Number: None

PATIENT
  Age: 76 Year
  Sex: Female
  Weight: 87 kg

DRUGS (2)
  1. GEMCITABINE [Suspect]
     Active Substance: GEMCITABINE
     Indication: Lung adenocarcinoma
     Dosage: CARBO SCHEME (500 MG IV ON DAY 1) + GEMCITABINE (1900 MG)
     Dates: start: 20240108, end: 20240318
  2. CARBOPLATIN [Suspect]
     Active Substance: CARBOPLATIN
     Indication: Lung adenocarcinoma
     Dosage: CARBO SCHEME (500 MG IV ON DAY 1) + GEMCITABINE (1900 MG)
     Dates: start: 20240108, end: 20240318

REACTIONS (2)
  - Nausea [Recovered/Resolved]
  - Leukopenia [Recovered/Resolved]

NARRATIVE: CASE EVENT DATE: 20240223
